FAERS Safety Report 6557312-5 (Version None)
Quarter: 2010Q1

REPORT INFORMATION
  Report Type: 
  Country: None (occurrence: None)
  Receive Date: 20100127
  Receipt Date: 20100127
  Transmission Date: 20100710
  Serious: Yes (Other)
  Sender: FDA-Public Use
  Company Number: None

PATIENT
  Age: 52 Year
  Sex: Female

DRUGS (1)
  1. SUCCINYLCHOLINE CHLORIDE [Suspect]
     Dosage: UNKNOWN UNKNOWN UNK
     Dates: start: 20091230, end: 20091230

REACTIONS (2)
  - ERYTHEMA [None]
  - FACE OEDEMA [None]
